FAERS Safety Report 5782575-3 (Version None)
Quarter: 2008Q2

REPORT INFORMATION
  Report Type: 
  Country: None (occurrence: None)
  Receive Date: 20080624
  Receipt Date: 20080611
  Transmission Date: 20081010
  Serious: Yes (Other)
  Sender: FDA-Public Use
  Company Number: CA-PFIZER INC-2008049730

PATIENT
  Age: 25 Year
  Sex: Male
  Weight: 98.2 kg

DRUGS (1)
  1. CHANTIX [Suspect]

REACTIONS (5)
  - AGITATION [None]
  - CRYING [None]
  - DEPRESSION [None]
  - IRRITABILITY [None]
  - SUICIDAL IDEATION [None]
